FAERS Safety Report 14364451 (Version 11)
Quarter: 2022Q4

REPORT INFORMATION
  Report Type: Spontaneous
  Country: DK (occurrence: DK)
  Receive Date: 20180108
  Receipt Date: 20221107
  Transmission Date: 20230112
  Serious: Yes (Other)
  Sender: FDA-Public Use
  Company Number: DK-SA-2017SA119785

PATIENT
  Age: 30 Year
  Sex: Female

DRUGS (15)
  1. CISPLATIN [Suspect]
     Active Substance: CISPLATIN
     Indication: Gestational trophoblastic tumour
     Dosage: 20 MG/M2, Q3W, ON DAYS 1-5, REPEATED EVERY 3 WEEKS
     Route: 042
  2. CISPLATIN [Suspect]
     Active Substance: CISPLATIN
     Dosage: 50 MG/M2, Q3W, DAY 1-2
     Route: 042
     Dates: start: 2010
  3. CISPLATIN [Suspect]
     Active Substance: CISPLATIN
     Dosage: 200 MILLIGRAM/SQ. METER, QD(20 MG/M2, Q3WK, DAY 1-5 )
     Route: 042
  4. CISPLATIN [Suspect]
     Active Substance: CISPLATIN
     Dosage: 50 MILLIGRAM/SQ. METER (50 MG/M2, DAY 1-2 )
     Route: 042
  5. ETOPOSIDE [Suspect]
     Active Substance: ETOPOSIDE
     Indication: Gestational trophoblastic tumour
     Dosage: 100 MG/M2, QD, ADMINISTERED ON DAYS 15 3 WEEKS CYCLE, Q3WK
     Route: 042
  6. ETOPOSIDE [Suspect]
     Active Substance: ETOPOSIDE
     Dosage: 162 MG/M2, UNK
     Route: 042
  7. ETOPOSIDE [Suspect]
     Active Substance: ETOPOSIDE
     Dosage: 165 MG/M2, UNK, DAY 1-3 (3 WEEK INTERVAL)
     Route: 042
     Dates: start: 20100101
  8. ETOPOSIDE [Suspect]
     Active Substance: ETOPOSIDE
     Dosage: 165 MG/M2, DAY 1-3, 3 WEEK INTERVAL
     Route: 042
     Dates: start: 2010
  9. METHOTREXATE [Suspect]
     Active Substance: METHOTREXATE
     Indication: Gestational trophoblastic tumour
     Dosage: 10 MG, QD (2.5 MG, QID FOR 5 DAYS)
     Route: 048
  10. METHOTREXATE [Suspect]
     Active Substance: METHOTREXATE
     Dosage: 2.5 MG, QD, REPEATED EVERY 3 WEEKS (ALTERNATIVELY EVERY 3 WEEKS)
     Route: 048
  11. METHOTREXATE [Suspect]
     Active Substance: METHOTREXATE
     Dosage: 2.5 MG, EVERY 4 WEEKS (ALTERNATIVELY EVERY 3 WEEKS)
     Route: 048
  12. BLEOMYCIN [Suspect]
     Active Substance: BLEOMYCIN SULFATE
     Indication: Gestational trophoblastic tumour
     Dosage: 30000 IU, Q3W,
     Route: 042
  13. BLEOMYCIN [Suspect]
     Active Substance: BLEOMYCIN SULFATE
     Dosage: 30000 INTERNATIONAL UNIT, QW
     Route: 042
  14. LEUCOVORIN CALCIUM [Concomitant]
     Active Substance: LEUCOVORIN CALCIUM
     Indication: Drug toxicity prophylaxis
     Dosage: 1 ML, UNK, 4 WEEK
     Route: 048
  15. DACTINOMYCIN [Concomitant]
     Active Substance: DACTINOMYCIN
     Indication: Product used for unknown indication
     Dosage: 0.5 MG, UNK, FOR 5 DAYS
     Route: 042

REACTIONS (4)
  - Respiratory symptom [Unknown]
  - Anaemia [Unknown]
  - Drug resistance [Unknown]
  - Product use in unapproved indication [Unknown]
